FAERS Safety Report 11500044 (Version 1)
Quarter: 2015Q3

REPORT INFORMATION
  Report Type: Spontaneous
  Country: KH (occurrence: KH)
  Receive Date: 20150914
  Receipt Date: 20150914
  Transmission Date: 20151125
  Serious: Yes (Other)
  Sender: FDA-Public Use
  Company Number: KH-SA-2015SA136750

PATIENT
  Age: 5 Year
  Sex: Female

DRUGS (1)
  1. TUBERSOL [Suspect]
     Active Substance: TUBERCULIN PURIFIED PROTEIN DERIVATIVE
     Indication: TUBERCULIN TEST
     Dosage: 5 TUBERCULIN UNITS
     Route: 023
     Dates: start: 20140421, end: 20140421

REACTIONS (6)
  - Injection site swelling [Recovered/Resolved]
  - Microcytic anaemia [Unknown]
  - Eschar [Recovered/Resolved]
  - Keloid scar [Recovered/Resolved]
  - Injection site necrosis [Recovered/Resolved]
  - Thrombocytosis [Unknown]
